FAERS Safety Report 25525335 (Version 2)
Quarter: 2025Q3

REPORT INFORMATION
  Report Type: Report from Study
  Country: CA (occurrence: CA)
  Receive Date: 20250707
  Receipt Date: 20250805
  Transmission Date: 20251020
  Serious: Yes (Other)
  Sender: ABBVIE
  Company Number: CA-ABBVIE-6357636

PATIENT
  Sex: Female

DRUGS (1)
  1. SKYRIZI [Suspect]
     Active Substance: RISANKIZUMAB-RZAA
     Indication: Psoriasis
     Dosage: FORM STRENGTH: SKYRIZI AI 150MG/ML
     Route: 058
     Dates: start: 20210329

REACTIONS (2)
  - Cyst [Recovered/Resolved]
  - Uterine leiomyoma [Recovered/Resolved]
